FAERS Safety Report 4710016-3 (Version None)
Quarter: 2005Q3

REPORT INFORMATION
  Report Type: 
  Country: None (occurrence: None)
  Receive Date: 20050708
  Receipt Date: 20050602
  Transmission Date: 20060218
  Serious: Yes (Death, Hospitalization)
  Sender: FDA-Public Use
  Company Number: PHNR2005AU00942

PATIENT
  Age: 61 Year
  Sex: Male

DRUGS (4)
  1. ZOMETA [Suspect]
     Indication: PROSTATE CANCER METASTATIC
     Dosage: 4MG EVERY 4 WEEKS
     Dates: start: 20050308
  2. STRONTIUM CHLORIDE SR-89 [Suspect]
  3. OXYCONTIN [Concomitant]
  4. ANDROCUR [Concomitant]

REACTIONS (4)
  - MALIGNANT NEOPLASM PROGRESSION [None]
  - OBSTRUCTIVE UROPATHY [None]
  - PLATELET COUNT DECREASED [None]
  - RENAL FAILURE CHRONIC [None]
